FAERS Safety Report 21184679 (Version 5)
Quarter: 2024Q2

REPORT INFORMATION
  Report Type: Report from Study
  Country: US (occurrence: US)
  Receive Date: 20220808
  Receipt Date: 20240611
  Transmission Date: 20240715
  Serious: No
  Sender: FDA-Public Use
  Company Number: US-NOVARTISTESTPH-NVSC2022US178765

PATIENT
  Sex: Female

DRUGS (1)
  1. ENTRESTO [Suspect]
     Active Substance: SACUBITRIL\VALSARTAN
     Indication: Product used for unknown indication
     Dosage: 1 DOSAGE FORM, BID (24/26 MG)
     Route: 048
     Dates: start: 202203

REACTIONS (6)
  - Migraine [Recovering/Resolving]
  - Headache [Unknown]
  - COVID-19 [Unknown]
  - Cough [Not Recovered/Not Resolved]
  - Weight fluctuation [Unknown]
  - Dyspnoea [Unknown]
